FAERS Safety Report 7066554-4 (Version None)
Quarter: 2010Q4

REPORT INFORMATION
  Report Type: 
  Country: None (occurrence: None)
  Receive Date: 20101027
  Receipt Date: 20101004
  Transmission Date: 20110411
  Serious: No
  Sender: FDA-Public Use
  Company Number: US-WYE-H16316510

PATIENT
  Sex: Female
  Weight: 72.64 kg

DRUGS (6)
  1. PREMPRO [Suspect]
     Indication: HOT FLUSH
     Dosage: 0.3/1.5 MG DAILY
     Route: 048
     Dates: start: 20100630
  2. NICOTINIC ACID [Concomitant]
  3. CHOLESTYRAMINE [Concomitant]
     Indication: BLOOD CHOLESTEROL INCREASED
  4. CALCIUM [Concomitant]
  5. ZETIA [Concomitant]
  6. IMITREX [Concomitant]
     Indication: MIGRAINE

REACTIONS (4)
  - BLOOD CHOLESTEROL INCREASED [None]
  - CONDITION AGGRAVATED [None]
  - DRUG INEFFECTIVE [None]
  - FEELING OF BODY TEMPERATURE CHANGE [None]
